FAERS Safety Report 12104687 (Version 1)
Quarter: 2016Q1

REPORT INFORMATION
  Report Type: Spontaneous
  Country: CH (occurrence: CH)
  Receive Date: 20160223
  Receipt Date: 20160223
  Transmission Date: 20160526
  Serious: Yes (Hospitalization)
  Sender: FDA-Public Use
  Company Number: CH-ACTAVIS-2016-03674

PATIENT
  Age: 65 Year
  Sex: Male

DRUGS (2)
  1. OXYCODONE (UNKNOWN) [Suspect]
     Active Substance: OXYCODONE
     Indication: RADICULAR PAIN
     Dosage: 40 MG, BID
     Route: 065
  2. NALMEFENE [Interacting]
     Active Substance: NALMEFENE
     Indication: ALCOHOLISM
     Dosage: UNK
     Route: 065

REACTIONS (5)
  - Drug withdrawal syndrome [Unknown]
  - Malaise [Unknown]
  - Abdominal pain upper [Unknown]
  - Drug interaction [Unknown]
  - Nausea [Unknown]
